FAERS Safety Report 26105459 (Version 1)
Quarter: 2025Q4

REPORT INFORMATION
  Report Type: Spontaneous
  Country: CN (occurrence: CN)
  Receive Date: 20251201
  Receipt Date: 20251201
  Transmission Date: 20260118
  Serious: Yes (Other)
  Sender: ACCORD
  Company Number: CN-Accord-515501

PATIENT
  Age: 65 Year
  Sex: Male

DRUGS (5)
  1. MYCOPHENOLATE MOFETIL [Suspect]
     Active Substance: MYCOPHENOLATE MOFETIL
     Indication: Ventricular arrhythmia
     Dates: start: 202306
  2. ESMOLOL [Suspect]
     Active Substance: ESMOLOL HYDROCHLORIDE
     Indication: Ventricular arrhythmia
     Dates: start: 202306
  3. AMIODARONE [Concomitant]
     Active Substance: AMIODARONE
     Dates: start: 202306
  4. IMMUNOGLOBULIN [Concomitant]
     Dosage: 10-30 G/DAY
     Dates: start: 20230616
  5. METHYLPREDNISOLONE [Concomitant]
     Active Substance: METHYLPREDNISOLONE
     Dosage: HIGH-DOSE 240-480 MG/DAY
     Dates: start: 20230616

REACTIONS (2)
  - Renal impairment [Unknown]
  - Hepatic function abnormal [Unknown]

NARRATIVE: CASE EVENT DATE: 20230601
